FAERS Safety Report 23647850 (Version 2)
Quarter: 2025Q1

REPORT INFORMATION
  Report Type: Spontaneous
  Country: US (occurrence: US)
  Receive Date: 20240319
  Receipt Date: 20250117
  Transmission Date: 20250409
  Serious: No
  Sender: SANOFI AVENTIS
  Company Number: US-SA-SAC20240314000229

PATIENT
  Age: 55 Year
  Sex: Female

DRUGS (1)
  1. DUPIXENT [Suspect]
     Active Substance: DUPILUMAB
     Indication: Nasal polyps
     Dosage: 300 MG, QOW
     Route: 058

REACTIONS (6)
  - Fatigue [Unknown]
  - Post procedural infection [Unknown]
  - Staphylococcal infection [Unknown]
  - Myalgia [Unknown]
  - Upper respiratory tract infection [Unknown]
  - Arthralgia [Unknown]
